FAERS Safety Report 11021031 (Version 3)
Quarter: 2015Q2

REPORT INFORMATION
  Report Type: Spontaneous
  Country: CM (occurrence: CM)
  Receive Date: 20150413
  Receipt Date: 20150513
  Transmission Date: 20150821
  Serious: Yes (Death, Other)
  Sender: FDA-Public Use
  Company Number: CM-009507513-1504CMR002170

PATIENT
  Age: 22 Year
  Sex: Male

DRUGS (2)
  1. TIENAM [Suspect]
     Active Substance: CILASTATIN SODIUM\IMIPENEM
     Dosage: 2 BOTTLES GIVEN BETWEEN 31-MAR-2015 AND 01-APR-2015
     Route: 051
  2. HEPARIN [Concomitant]
     Active Substance: HEPARIN SODIUM
     Route: 065

REACTIONS (4)
  - Sepsis [Fatal]
  - Acute kidney injury [Fatal]
  - Renal failure [Fatal]
  - Anaemia [Fatal]

NARRATIVE: CASE EVENT DATE: 20150402
